FAERS Safety Report 7864895-1 (Version None)
Quarter: 2011Q4

REPORT INFORMATION
  Report Type: 
  Country: None (occurrence: None)
  Receive Date: 20111028
  Receipt Date: 20100914
  Transmission Date: 20120403
  Serious: No
  Sender: FDA-Public Use
  Company Number: US-GLAXOSMITHKLINE-A0881094A

PATIENT
  Age: 74 Year
  Sex: Female

DRUGS (7)
  1. PRAVASTATIN [Concomitant]
  2. AGGRENOX [Concomitant]
  3. NIFEDIPINE [Concomitant]
  4. ADVAIR DISKUS 100/50 [Suspect]
     Indication: BRONCHITIS CHRONIC
     Dosage: 1PUFF TWICE PER DAY
     Route: 055
     Dates: start: 20100801
  5. DIOVAN [Concomitant]
  6. NEXIUM [Concomitant]
  7. PREVACID [Concomitant]

REACTIONS (3)
  - PRODUCT QUALITY ISSUE [None]
  - WHEEZING [None]
  - COUGH [None]
